FAERS Safety Report 24659017 (Version 3)
Quarter: 2024Q4

REPORT INFORMATION
  Report Type: Spontaneous
  Country: US (occurrence: US)
  Receive Date: 20241125
  Receipt Date: 20241228
  Transmission Date: 20250114
  Serious: Yes (Death, Hospitalization, Other)
  Sender: ACCORD
  Company Number: US-Accord-456735

PATIENT
  Age: 77 Year
  Sex: Female
  Weight: 97.5 kg

DRUGS (19)
  1. CISPLATIN [Suspect]
     Active Substance: CISPLATIN
     Indication: Small cell lung cancer limited stage
     Dosage: Q3W, IV DRIP
     Route: 042
     Dates: start: 20241029, end: 20241029
  2. ETOPOSIDE [Suspect]
     Active Substance: ETOPOSIDE
     Indication: Small cell lung cancer limited stage
     Dosage: ONCE DAILY (QD) FOR THREE DAYS OF EACH CYCLE (FROM DAY ONE TO DAY THREE)
     Route: 042
     Dates: start: 20241029, end: 20241030
  3. COZAAR [Concomitant]
     Active Substance: LOSARTAN POTASSIUM
     Dosage: 1 TABLET, DAILY
     Route: 048
     Dates: start: 20241031
  4. VITAMIN D3 [Concomitant]
     Active Substance: CHOLECALCIFEROL
     Dosage: 1 CAPSULE, DAILY
     Route: 048
     Dates: start: 20241031
  5. ZOCOR [Concomitant]
     Active Substance: SIMVASTATIN
     Dosage: 1 TABLET, DAILY
     Route: 048
     Dates: start: 20241031
  6. INSULIN LISPRO [Concomitant]
     Active Substance: INSULIN LISPRO
     Dosage: 2-20UNITS, THREE TIMES A DAY
     Route: 058
     Dates: start: 20241031
  7. NICODERM CQ [Concomitant]
     Active Substance: NICOTINE
     Dosage: 1 PATCH ON THE SKIN DAILY
     Dates: start: 20241031
  8. TIAZAC [Concomitant]
     Active Substance: DILTIAZEM HYDROCHLORIDE
     Dosage: 1 CAPSULE, DAILY
     Route: 048
     Dates: start: 20241031
  9. ELIQUIS [Concomitant]
     Active Substance: APIXABAN
     Dosage: 1 TABLET, TWICE DAILY
     Route: 048
     Dates: start: 20241031
  10. LANTUS [Concomitant]
     Active Substance: INSULIN GLARGINE
     Dosage: 20UNIT, TWICE DAILY, BEFORE BREAKFAST AND BEFORE DINNER
     Route: 058
     Dates: start: 20241031
  11. SYNTHROID [Concomitant]
     Active Substance: LEVOTHYROXINE SODIUM
     Dosage: 1 TABLET ON EMPTY STOMACH 6 DAYS PER WEEK
     Dates: start: 20241031
  12. PEPCID [Concomitant]
     Active Substance: FAMOTIDINE
     Dosage: 1 TABLET, TWICE DAILY
     Route: 048
     Dates: start: 20241031
  13. ASPIRIN [Concomitant]
     Active Substance: ASPIRIN
     Dosage: 1 TABLET, EVERY MORNING,
     Route: 048
     Dates: start: 20241031
  14. CLOZARIL [Concomitant]
     Active Substance: CLOZAPINE
     Dosage: DAILY
     Route: 048
     Dates: start: 20241031
  15. METHYLPREDNISOLONE SODIUM SUCCINATE [Concomitant]
     Active Substance: METHYLPREDNISOLONE SODIUM SUCCINATE
     Dates: start: 20241031, end: 20241031
  16. ZOSYN [Concomitant]
     Active Substance: PIPERACILLIN SODIUM\TAZOBACTAM SODIUM
     Dates: start: 20241031, end: 20241031
  17. VANCOMYCIN [Concomitant]
     Active Substance: VANCOMYCIN
     Dates: start: 20241031, end: 20241031
  18. DILTIAZEM [Concomitant]
     Active Substance: DILTIAZEM
     Dosage: 60MG, ONCE EVERY 6 HOURS
  19. METOPROLOL SUCCINATE [Concomitant]
     Active Substance: METOPROLOL SUCCINATE
     Dosage: 200MG

REACTIONS (3)
  - Acute respiratory failure [Recovering/Resolving]
  - Hypoxia [Recovering/Resolving]
  - Death [Fatal]

NARRATIVE: CASE EVENT DATE: 20241031
